FAERS Safety Report 8643490 (Version 2)
Quarter: 2014Q1

REPORT INFORMATION
  Report Type: Spontaneous
  Country: US (occurrence: None)
  Receive Date: 20120323
  Receipt Date: 20130305
  Transmission Date: 20141002
  Serious: Yes (Hospitalization)
  Sender: FDA-Public Use
  Company Number: 163-21880-11101384

PATIENT
  Age: 74 Year
  Sex: Female
  Weight: 71.67 kg

DRUGS (7)
  1. REVLIMID [Suspect]
     Indication: PLASMA CELL MYELOMA
     Dosage: 15 MG, DAILY FOR 21 DAYS, PO
     Route: 048
     Dates: start: 201004
  2. LEVOTHYROXINE SODIUM [Concomitant]
  3. DIOVAN [Concomitant]
  4. JANUVIA [Concomitant]
  5. METFORMIN HYDROCHLORIDE [Concomitant]
  6. BONVIA (IBANDRONATE SODIUM) [Concomitant]
  7. LIPITOR [Concomitant]

REACTIONS (5)
  - Infection [None]
  - Full blood count decreased [None]
  - Anaemia [None]
  - Plasma cell myeloma [None]
  - Fatigue [None]
